APPROVED DRUG PRODUCT: MESALAMINE
Active Ingredient: MESALAMINE
Strength: 4GM/60ML
Dosage Form/Route: ENEMA;RECTAL
Application: A216941 | Product #001 | TE Code: AB
Applicant: ENCUBE ETHICALS PRIVATE LTD
Approved: May 30, 2023 | RLD: No | RS: No | Type: RX